FAERS Safety Report 14968409 (Version 1)
Quarter: 2018Q2

REPORT INFORMATION
  Report Type: Spontaneous
  Country: US (occurrence: US)
  Receive Date: 20180511
  Receipt Date: 20180511
  Transmission Date: 20180711
  Serious: Yes (Other)
  Sender: FDA-Public Use
  Company Number: None

PATIENT
  Age: 71 Year
  Sex: Female

DRUGS (4)
  1. SYNTHROID 0.1MG [Concomitant]
  2. TRAMADOL 50MG [Concomitant]
     Active Substance: TRAMADOL
  3. CABOMETYX [Suspect]
     Active Substance: CABOZANTINIB S-MALATE
     Indication: RENAL CELL CARCINOMA
     Route: 048
     Dates: start: 20180403, end: 20180511
  4. LASIX 40MG [Concomitant]

REACTIONS (4)
  - Constipation [None]
  - Diarrhoea [None]
  - Fatigue [None]
  - Dysgeusia [None]

NARRATIVE: CASE EVENT DATE: 20180501
